FAERS Safety Report 9234447 (Version 1)
Quarter: 2013Q2

REPORT INFORMATION
  Report Type: Spontaneous
  Country: US (occurrence: US)
  Receive Date: 20130416
  Receipt Date: 20130416
  Transmission Date: 20140414
  Serious: No
  Sender: FDA-Public Use
  Company Number: US-BANPHARM-20120050

PATIENT
  Age: 89 Year
  Sex: Female
  Weight: 54 kg

DRUGS (7)
  1. ALEVE LIQUID GELS 220 MG [Suspect]
     Indication: BACK PAIN
     Dosage: 220 MG ONCE DAILY
     Route: 048
     Dates: start: 201207, end: 20120806
  2. BAYER ENTERIC ASPIRIN 81 MG [Concomitant]
     Indication: PROPHYLAXIS
     Dosage: 81 MG ONCE DAILY
     Route: 048
  3. GENERIC SYNTHROID [Concomitant]
  4. CENTRUM [Concomitant]
  5. VITAMIN C [Concomitant]
  6. FISH OIL [Concomitant]
  7. DIAZIDE [Concomitant]

REACTIONS (1)
  - Blood pressure increased [Not Recovered/Not Resolved]
